FAERS Safety Report 15203343 (Version 3)
Quarter: 2019Q1

REPORT INFORMATION
  Report Type: Spontaneous
  Country: DE (occurrence: DE)
  Receive Date: 20180726
  Receipt Date: 20190319
  Transmission Date: 20190417
  Serious: Yes (Hospitalization)
  Sender: FDA-Public Use
  Company Number: DE-PFIZER INC-2018300715

PATIENT
  Age: 63 Year
  Sex: Female
  Weight: 56 kg

DRUGS (15)
  1. NOCUTIL /00361902/ [Suspect]
     Active Substance: DESMOPRESSIN ACETATE
     Dosage: UNK, (0.1-0.05-0.05, REPORTED IN LABORATORY LETTER FROM MAR-2017)
     Route: 048
  2. NOCUTIL /00361902/ [Suspect]
     Active Substance: DESMOPRESSIN ACETATE
     Indication: INAPPROPRIATE ANTIDIURETIC HORMONE SECRETION
     Dosage: 0.5 MG, UNK (Q3D, INCREASED TO 3X0.2 MG/D; FURTHER REDUCED TO MAX 0.4 MG/D)
     Route: 048
     Dates: start: 201409
  3. SODIUM CHLORIDE. [Concomitant]
     Active Substance: SODIUM CHLORIDE
     Dosage: UNK
  4. PANTOPRAZOLE [Concomitant]
     Active Substance: PANTOPRAZOLE
     Dosage: UNK
  5. RAMIPRIL. [Suspect]
     Active Substance: RAMIPRIL
     Indication: HYPERTENSION
     Dosage: 0.5 DF, 1X/DAY (QD)
     Route: 048
     Dates: start: 201401
  6. DEKRISTOL [Concomitant]
     Active Substance: CHOLECALCIFEROL
     Dosage: UNK
  7. NOCUTIL /00361902/ [Suspect]
     Active Substance: DESMOPRESSIN ACETATE
     Dosage: UNK
     Route: 048
  8. HYDROCORTISONE. [Concomitant]
     Active Substance: HYDROCORTISONE
     Dosage: UNK
  9. NOCUTIL /00361902/ [Suspect]
     Active Substance: DESMOPRESSIN ACETATE
     Dosage: UNK, (0.1MG-0.05MG-0.1MG, REPORTED IN LABORATORY LETTER FROM AUG-2016)
     Route: 048
  10. ESTRAMON /00045401/ [Concomitant]
     Active Substance: ESTRADIOL
     Dosage: UNK
  11. IBANDRONIC ACID. [Concomitant]
     Active Substance: IBANDRONIC ACID
     Dosage: UNK
     Dates: end: 201701
  12. NOCUTIL /00361902/ [Suspect]
     Active Substance: DESMOPRESSIN ACETATE
     Dosage: UNK (1-0.5-1 EACH INTAKE CA.1 H AFTER THE MEALS)
     Route: 048
  13. SODIUM CHLORIDE. [Concomitant]
     Active Substance: SODIUM CHLORIDE
     Dosage: UNK
  14. CITALOPRAM [Suspect]
     Active Substance: CITALOPRAM HYDROBROMIDE
     Dosage: 10 MG, 1X/DAY
     Route: 065
     Dates: start: 201309, end: 201507
  15. NOCUTIL /00361902/ [Suspect]
     Active Substance: DESMOPRESSIN ACETATE
     Dosage: UNK, (1-0.5-1 EACH INTAKE CA.1 H AFTER THE MEALS)
     Route: 048

REACTIONS (13)
  - Contusion [Recovering/Resolving]
  - Abdominal discomfort [Recovered/Resolved]
  - Nausea [Not Recovered/Not Resolved]
  - Product prescribing error [Unknown]
  - Syncope [Recovered/Resolved]
  - Urticaria [Unknown]
  - Dysgeusia [Unknown]
  - Hyponatraemia [Recovering/Resolving]
  - Urine output decreased [Unknown]
  - Hypertension [Unknown]
  - Muscular weakness [Unknown]
  - Hyperhidrosis [Unknown]
  - Headache [Not Recovered/Not Resolved]

NARRATIVE: CASE EVENT DATE: 20150526
